FAERS Safety Report 23184604 (Version 1)
Quarter: 2023Q4

REPORT INFORMATION
  Report Type: Spontaneous
  Country: US (occurrence: US)
  Receive Date: 20231115
  Receipt Date: 20231115
  Transmission Date: 20240110
  Serious: Yes (Other)
  Sender: FDA-Public Use
  Company Number: US-ROCHE-3452613

PATIENT
  Age: 70 Year
  Sex: Female

DRUGS (9)
  1. CLONAZEPAM [Suspect]
     Active Substance: CLONAZEPAM
     Indication: Product used for unknown indication
     Route: 048
  2. ACTEMRA [Suspect]
     Active Substance: TOCILIZUMAB
     Indication: Rheumatoid arthritis
     Dosage: DIRECT AUTO-INJECTOR
     Route: 058
  3. ACTEMRA [Suspect]
     Active Substance: TOCILIZUMAB
     Indication: Systemic scleroderma
     Dosage: DIRECT AUTO-INJECTOR
     Route: 058
  4. FLONASE [Concomitant]
     Active Substance: FLUTICASONE PROPIONATE
  5. IBUPROFEN [Concomitant]
     Active Substance: IBUPROFEN
  6. VITAMIN D3 [Concomitant]
     Active Substance: CHOLECALCIFEROL
  7. LIPITOR [Concomitant]
     Active Substance: ATORVASTATIN CALCIUM
  8. BENZOIC ACID [Concomitant]
     Active Substance: BENZOIC ACID
  9. PANTOPRAZOLE [Concomitant]
     Active Substance: PANTOPRAZOLE

REACTIONS (6)
  - Diabetes mellitus [Unknown]
  - Interstitial lung disease [Unknown]
  - Raynaud^s phenomenon [Unknown]
  - Hyperlipidaemia [Unknown]
  - Hypertension [Unknown]
  - Gastrooesophageal reflux disease [Unknown]
